FAERS Safety Report 6523460-9 (Version None)
Quarter: 2009Q4

REPORT INFORMATION
  Report Type: 
  Country: None (occurrence: None)
  Receive Date: 20091222
  Receipt Date: 20091209
  Transmission Date: 20100525
  Serious: Yes (Other)
  Sender: FDA-Public Use
  Company Number: 002411

PATIENT
  Sex: Male
  Weight: 80 kg

DRUGS (1)
  1. NEUPRO [Suspect]
     Dosage: 4 MG QD

REACTIONS (3)
  - CONVULSION [None]
  - DEVICE MALFUNCTION [None]
  - SENSORY DISTURBANCE [None]
